FAERS Safety Report 25305688 (Version 1)
Quarter: 2025Q2

REPORT INFORMATION
  Report Type: Spontaneous
  Country: US (occurrence: None)
  Receive Date: 20250513
  Receipt Date: 20250513
  Transmission Date: 20250717
  Serious: Yes (Hospitalization)
  Sender: FDA-CTU
  Company Number: None

PATIENT
  Age: 36 Year
  Sex: Female
  Weight: 78.9 kg

DRUGS (7)
  1. CYCLOPHOSPHAMIDE [Suspect]
     Active Substance: CYCLOPHOSPHAMIDE
     Dates: end: 20250411
  2. CYTARABINE [Suspect]
     Active Substance: CYTARABINE
     Dates: end: 20250411
  3. DEXAMETHASONE [Suspect]
     Active Substance: DEXAMETHASONE
     Dates: end: 20250422
  4. DOXORUBICIN HYDROCHLORIDE [Suspect]
     Active Substance: DOXORUBICIN HYDROCHLORIDE
     Dates: end: 20250412
  5. METHOTREXATE [Suspect]
     Active Substance: METHOTREXATE
     Dates: end: 20250428
  6. PONATINIB [Suspect]
     Active Substance: PONATINIB
     Dates: end: 20250428
  7. VINCRISTINE SULFATE [Suspect]
     Active Substance: VINCRISTINE SULFATE
     Dates: end: 20250419

REACTIONS (5)
  - Facial pain [None]
  - Headache [None]
  - Facial paralysis [None]
  - Hypoaesthesia [None]
  - Eye disorder [None]

NARRATIVE: CASE EVENT DATE: 20250429
